FAERS Safety Report 18699905 (Version 1)
Quarter: 2021Q1

REPORT INFORMATION
  Report Type: Spontaneous
  Country: CN (occurrence: CN)
  Receive Date: 20210104
  Receipt Date: 20210104
  Transmission Date: 20210419
  Serious: Yes (Other)
  Sender: FDA-Public Use
  Company Number: CN-BAXTER-2020BAX026870

PATIENT
  Age: 55 Year
  Sex: Male
  Weight: 60 kg

DRUGS (15)
  1. XIAIKE [Suspect]
     Active Substance: VINDESINE
     Dosage: DOSE RE?INTRODUCED, ROUTE: INTRA?PUMP INJECTION, XIAIKE + 0.9% SODIUM CHLORIDE
     Route: 050
     Dates: start: 202012
  2. 5% GLUCOSE  INJECTION [Suspect]
     Active Substance: DEXTROSE
     Dosage: ROUTE: INTRA?PUMP INJECTION, CHOP REGIMEN, DUOMEISU 20MG + 5% GLUCOSE 150ML, 7.5ML/HR FIRST 5MIN, 15
     Route: 050
     Dates: start: 20201215, end: 20201215
  3. PREDNISONE. [Suspect]
     Active Substance: PREDNISONE
     Indication: OESOPHAGEAL CARCINOMA
     Dosage: CHOP REGIMEN
     Route: 065
  4. 0.9% SODIUM CHLORIDE INJECTION [Suspect]
     Active Substance: SODIUM CHLORIDE
     Indication: MEDICATION DILUTION
     Dosage: ENDOXAN 1200 MG + 0.9% SODIUM CHLORIDE 250 ML, CHOP REGIMEN
     Route: 041
     Dates: start: 20201215, end: 20201215
  5. DUOMEISU [Suspect]
     Active Substance: DOXORUBICIN HYDROCHLORIDE
     Dosage: ROUTE: INTRA?PUMP INJECTION, DOSE REINTRODUCED, DUOMEISU + 5% GLUCOSE
     Route: 050
     Dates: start: 202012
  6. 0.9% SODIUM CHLORIDE INJECTION [Suspect]
     Active Substance: SODIUM CHLORIDE
     Dosage: DOSE RE?INTRODUCED, ROUTE: INTRA?PUMP INJECTION, XIAIKE + 0.9% SODIUM CHLORIDE
     Route: 050
     Dates: start: 202012
  7. DUOMEISU [Suspect]
     Active Substance: DOXORUBICIN HYDROCHLORIDE
     Indication: OESOPHAGEAL CARCINOMA
     Dosage: SELF?PREPARED, ROUTE: INTRA?PUMP INJECTION, CHOP REGIMEN, DUOMEISU 20MG + 5% GLUCOSE 150ML, 7.5ML/HR
     Route: 050
     Dates: start: 20201215, end: 20201215
  8. DUOMEISU [Suspect]
     Active Substance: DOXORUBICIN HYDROCHLORIDE
     Dosage: SELF?PREPARED, ROUTE: INTRA?PUMP INJECTION, CHOP REGIMEN, DUOMEISU 20MG + 5% GLUCOSE 150ML, 7.5ML/HR
     Route: 050
     Dates: start: 20201215, end: 20201215
  9. ENDOXAN [Suspect]
     Active Substance: CYCLOPHOSPHAMIDE
     Indication: OESOPHAGEAL CARCINOMA
     Dosage: ENDOXAN 1200 MG + 0.9% SODIUM CHLORIDE 250 ML, CHOP REGIMEN
     Route: 041
     Dates: start: 20201215, end: 20201215
  10. 0.9% SODIUM CHLORIDE INJECTION [Suspect]
     Active Substance: SODIUM CHLORIDE
     Dosage: DOSE REINTRODUCED, ENDOXAN + 0.9% SODIUM CHLORIDE CHOP REGIMEN
     Route: 041
     Dates: start: 202012
  11. 0.9% SODIUM CHLORIDE INJECTION [Suspect]
     Active Substance: SODIUM CHLORIDE
     Dosage: ROUTE: INTRA?PUMP INJECTION, XIAIKE 4 MG + 0.9% SODIUM CHLORIDE 20 ML, CHOP REGIMEN
     Route: 050
     Dates: start: 20201215, end: 20201215
  12. 5% GLUCOSE  INJECTION [Suspect]
     Active Substance: DEXTROSE
     Indication: MEDICATION DILUTION
     Dosage: ROUTE: INTRA?PUMP INJECTION, CHOP REGIMEN, DUOMEISU 20MG + 5% GLUCOSE 150ML, 7.5ML/HR FIRST 5MIN, 15
     Route: 050
     Dates: start: 20201215, end: 20201215
  13. ENDOXAN [Suspect]
     Active Substance: CYCLOPHOSPHAMIDE
     Dosage: DOSE REINTRODUCED, ENDOXAN + 0.9% SODIUM CHLORIDE CHOP REGIMEN
     Route: 041
     Dates: start: 202012
  14. 5% GLUCOSE  INJECTION [Suspect]
     Active Substance: DEXTROSE
     Dosage: ROUTE: INTRA?PUMP INJECTION, DOSE REINTRODUCED, DUOMEISU + 5% GLUCOSE
     Route: 050
     Dates: start: 202012
  15. XIAIKE [Suspect]
     Active Substance: VINDESINE
     Indication: OESOPHAGEAL CARCINOMA
     Dosage: ROUTE: INTRA?PUMP INJECTION, XIAIKE 4 MG + 0.9% SODIUM CHLORIDE 20 ML, CHOP REGIMEN
     Route: 050
     Dates: start: 20201215, end: 20201215

REACTIONS (1)
  - Myelosuppression [Unknown]

NARRATIVE: CASE EVENT DATE: 20201221
